FAERS Safety Report 23565959 (Version 1)
Quarter: 2024Q1

REPORT INFORMATION
  Report Type: Spontaneous
  Country: US (occurrence: None)
  Receive Date: 20240226
  Receipt Date: 20240226
  Transmission Date: 20240410
  Serious: Yes (Hospitalization)
  Sender: FDA-Public Use
  Company Number: None

PATIENT
  Sex: Female

DRUGS (6)
  1. DIPHENHYDRAMINE [Suspect]
     Active Substance: DIPHENHYDRAMINE
     Indication: Breast cancer female
     Dosage: OTHER FREQUENCY : D 1 EVERY 21 DAYS;?
     Route: 042
     Dates: start: 202308
  2. GRANISETRON HYDROCHLORIDE [Suspect]
     Active Substance: GRANISETRON HYDROCHLORIDE
     Indication: Breast cancer female
     Dosage: OTHER FREQUENCY : D 1 EVERY 21 DAYS;?
     Route: 042
     Dates: start: 202308
  3. PHESGO SDV [Concomitant]
  4. DOCETAXEL MDV [Concomitant]
  5. DEXAMETHASONE [Concomitant]
     Active Substance: DEXAMETHASONE
  6. FAMOTIDINE SDV [Concomitant]

REACTIONS (1)
  - Hospitalisation [None]
